FAERS Safety Report 8185583 (Version 5)
Quarter: 2019Q3

REPORT INFORMATION
  Report Type: Spontaneous
  Country: US (occurrence: US)
  Receive Date: 20111018
  Receipt Date: 20190711
  Transmission Date: 20191005
  Serious: Yes (Other)
  Sender: FDA-Public Use
  Company Number: US-ASTRAZENECA-2010SE55588

PATIENT
  Age: 81 Year
  Sex: Female
  Weight: 86.6 kg

DRUGS (17)
  1. SYMBICORT [Suspect]
     Active Substance: BUDESONIDE\FORMOTEROL FUMARATE DIHYDRATE
     Indication: ASTHMA
     Dosage: 160/4.5 MCG ONE PUFF TWO TIMEAS A DAY
     Route: 055
     Dates: start: 20170117
  2. SYMBICORT [Suspect]
     Active Substance: BUDESONIDE\FORMOTEROL FUMARATE DIHYDRATE
     Indication: CHRONIC OBSTRUCTIVE PULMONARY DISEASE
     Dosage: 80-4.5- 1 INHALATION , TWICE A DAY (DECREASED DOSE)
     Route: 055
  3. SYMBICORT [Suspect]
     Active Substance: BUDESONIDE\FORMOTEROL FUMARATE DIHYDRATE
     Indication: ASTHMA
     Dosage: 160/4.5 MCG TWO PUFFS TWO TIMES A DAY
     Route: 055
     Dates: start: 201512
  4. SYMBICORT [Suspect]
     Active Substance: BUDESONIDE\FORMOTEROL FUMARATE DIHYDRATE
     Indication: ASTHMA
     Dosage: 80-4.5- 1 INHALATION , TWICE A DAY (DECREASED DOSE)
     Route: 055
  5. PREMARIN [Suspect]
     Active Substance: ESTROGENS, CONJUGATED
     Indication: VULVOVAGINAL DRYNESS
     Dosage: 0.625MG TWICE A WEEK, ON TUESDAY AND FRIDAY, INSERTED VAGINALLY WITH APPLICATOR
     Route: 061
     Dates: start: 20190111
  6. SYMBICORT [Suspect]
     Active Substance: BUDESONIDE\FORMOTEROL FUMARATE DIHYDRATE
     Indication: BRONCHITIS CHRONIC
     Dosage: 160/4.5 MCG ONE PUFF TWO TIMEAS A DAY
     Route: 055
     Dates: start: 2008, end: 201009
  7. SYMBICORT [Suspect]
     Active Substance: BUDESONIDE\FORMOTEROL FUMARATE DIHYDRATE
     Indication: CHRONIC OBSTRUCTIVE PULMONARY DISEASE
     Dosage: 160/4.5 MCG ONE PUFF TWO TIMEAS A DAY
     Route: 055
     Dates: start: 20170117
  8. DRY EYE EYE DROPS [Concomitant]
     Indication: DRY EYE
     Route: 047
  9. SYMBICORT [Suspect]
     Active Substance: BUDESONIDE\FORMOTEROL FUMARATE DIHYDRATE
     Indication: ASTHMA
     Dosage: 160/4.5 MCG ONE PUFF TWO TIMEAS A DAY
     Route: 055
     Dates: start: 2008, end: 201009
  10. SYMBICORT [Suspect]
     Active Substance: BUDESONIDE\FORMOTEROL FUMARATE DIHYDRATE
     Indication: BRONCHITIS CHRONIC
     Dosage: 160/4.5 MCG TWO PUFFS TWO TIMES A DAY
     Route: 055
     Dates: start: 201512
  11. ALBUTEROL. [Concomitant]
     Active Substance: ALBUTEROL
     Dosage: FOUR TIMES DAILY AS REQUIRED
     Route: 055
  12. SYMBICORT [Suspect]
     Active Substance: BUDESONIDE\FORMOTEROL FUMARATE DIHYDRATE
     Indication: BRONCHITIS CHRONIC
     Dosage: 160/4.5 MCG ONE PUFF TWO TIMEAS A DAY
     Route: 055
     Dates: start: 20170117
  13. SYMBICORT [Suspect]
     Active Substance: BUDESONIDE\FORMOTEROL FUMARATE DIHYDRATE
     Indication: BRONCHITIS CHRONIC
     Dosage: 80-4.5- 1 INHALATION , TWICE A DAY (DECREASED DOSE)
     Route: 055
  14. SYMBICORT [Suspect]
     Active Substance: BUDESONIDE\FORMOTEROL FUMARATE DIHYDRATE
     Indication: CHRONIC OBSTRUCTIVE PULMONARY DISEASE
     Dosage: 160/4.5 MCG TWO PUFFS TWO TIMES A DAY
     Route: 055
     Dates: start: 201512
  15. SYMBICORT [Suspect]
     Active Substance: BUDESONIDE\FORMOTEROL FUMARATE DIHYDRATE
     Indication: CHRONIC OBSTRUCTIVE PULMONARY DISEASE
     Dosage: 160/4.5 MCG ONE PUFF TWO TIMEAS A DAY
     Route: 055
     Dates: start: 2008, end: 201009
  16. ALEVE [Concomitant]
     Active Substance: NAPROXEN SODIUM
     Indication: PAIN
     Route: 048
  17. VITAMINS NOS [Concomitant]
     Active Substance: VITAMINS

REACTIONS (20)
  - Arthropathy [Unknown]
  - Fibromyalgia [Not Recovered/Not Resolved]
  - Skin mass [Unknown]
  - Cystitis [Unknown]
  - Product dose omission [Unknown]
  - Productive cough [Unknown]
  - Blindness [Unknown]
  - Genital pain [Unknown]
  - Retinoschisis [Not Recovered/Not Resolved]
  - Joint swelling [Unknown]
  - Visual impairment [Not Recovered/Not Resolved]
  - Off label use [Recovered/Resolved]
  - Blood urine present [Unknown]
  - Product quality issue [Unknown]
  - Weight increased [Unknown]
  - Tremor [Unknown]
  - Dyspnoea [Unknown]
  - Bronchial obstruction [Unknown]
  - Migraine [Not Recovered/Not Resolved]
  - Aphonia [Recovering/Resolving]

NARRATIVE: CASE EVENT DATE: 2009
